FAERS Safety Report 21397269 (Version 3)
Quarter: 2022Q4

REPORT INFORMATION
  Report Type: Report from Study
  Country: CN (occurrence: None)
  Receive Date: 20220930
  Receipt Date: 20221028
  Transmission Date: 20230113
  Serious: Yes (Hospitalization)
  Sender: FDA-Public Use
  Company Number: CN-Eisai Medical Research-EC-2022-124832

PATIENT
  Age: 60 Year
  Sex: Male
  Weight: 62 kg

DRUGS (6)
  1. LENVATINIB [Suspect]
     Active Substance: LENVATINIB
     Indication: Non-small cell lung cancer metastatic
     Route: 048
     Dates: start: 20201016, end: 20220921
  2. PEMBROLIZUMAB [Suspect]
     Active Substance: PEMBROLIZUMAB
     Indication: Non-small cell lung cancer metastatic
     Route: 042
     Dates: start: 20201016, end: 20220902
  3. PEMETREXED [Suspect]
     Active Substance: PEMETREXED
     Indication: Non-small cell lung cancer metastatic
     Route: 042
     Dates: start: 20201016, end: 20220902
  4. CARBOPLATIN [Suspect]
     Active Substance: CARBOPLATIN
     Indication: Non-small cell lung cancer metastatic
     Dosage: AREA UNDER CURVE (AUC) 5 MG/ML/MIN
     Route: 042
     Dates: start: 20201016, end: 20210106
  5. FOLIC ACID [Concomitant]
     Active Substance: FOLIC ACID
     Dates: start: 20201009
  6. ZOLPIDEM TARTRATE [Concomitant]
     Active Substance: ZOLPIDEM TARTRATE
     Dates: start: 20220126

REACTIONS (1)
  - Vertigo positional [Recovered/Resolved]

NARRATIVE: CASE EVENT DATE: 20220922
